FAERS Safety Report 10253077 (Version 1)
Quarter: 2014Q2

REPORT INFORMATION
  Report Type: Spontaneous
  Country: FR (occurrence: FR)
  Receive Date: 20140623
  Receipt Date: 20140623
  Transmission Date: 20141212
  Serious: Yes (Hospitalization, Disabling)
  Sender: FDA-Public Use
  Company Number: FR-PFIZER INC-2014166413

PATIENT
  Age: 72 Year
  Sex: Male
  Weight: 77 kg

DRUGS (13)
  1. SOLU-MEDROL [Suspect]
     Indication: POLYCHONDRITIS
     Dosage: 250 MG, SINGLE
     Route: 040
     Dates: start: 20140423
  2. COLIMYCINE [Concomitant]
     Indication: PSEUDOMONAL SEPSIS
     Dosage: UNK
     Route: 042
     Dates: start: 20140421, end: 20140425
  3. FORTUM [Concomitant]
     Indication: PSEUDOMONAL SEPSIS
     Dosage: UNK
     Route: 042
     Dates: start: 20140421, end: 20140425
  4. CORTANCYL [Concomitant]
     Dosage: 20 MG, 1X/DAY
     Route: 048
  5. INEXIUM [Concomitant]
     Dosage: 40 MG, 1X/DAY
  6. XATRAL [Concomitant]
     Dosage: 2.5 MG, 3X/DAY
     Route: 048
  7. APROVEL [Concomitant]
     Dosage: 150 MG, 1X/DAY
     Route: 048
  8. ARANESP [Concomitant]
     Dosage: 40 UG, WEEKLY
  9. SPECIAFOLDINE [Concomitant]
     Dosage: 5 MG, DAILY
  10. CALCIPARIN [Concomitant]
     Dosage: UNK
  11. INSULIN [Concomitant]
     Dosage: UNK
  12. TAZOCILLINE [Concomitant]
     Dosage: UNK
     Dates: end: 20140416
  13. FORTIMEL [Concomitant]
     Dosage: UNK

REACTIONS (2)
  - Blindness [Not Recovered/Not Resolved]
  - Optic ischaemic neuropathy [Not Recovered/Not Resolved]
